FAERS Safety Report 7419813-7 (Version None)
Quarter: 2011Q2

REPORT INFORMATION
  Report Type: 
  Country: None (occurrence: None)
  Receive Date: 20110418
  Receipt Date: 20110408
  Transmission Date: 20111010
  Serious: Yes (Other)
  Sender: FDA-Public Use
  Company Number: US-US-EMD SERONO, INC.-232277J10USA

PATIENT
  Sex: Female
  Weight: 122 kg

DRUGS (2)
  1. REQUIP [Concomitant]
     Indication: RESTLESS LEGS SYNDROME
     Dates: start: 20060602
  2. REBIF [Suspect]
     Indication: MULTIPLE SCLEROSIS
     Route: 058
     Dates: start: 20060920

REACTIONS (5)
  - ENCHONDROMA [None]
  - DEPRESSION [None]
  - OSTEOARTHRITIS [None]
  - ARTHROPATHY [None]
  - PAIN [None]
